FAERS Safety Report 5876965-8 (Version None)
Quarter: 2008Q3

REPORT INFORMATION
  Report Type: 
  Country: None (occurrence: None)
  Receive Date: 20080909
  Receipt Date: 20080909
  Transmission Date: 20090109
  Serious: Yes (Hospitalization)
  Sender: FDA-Public Use
  Company Number: None

PATIENT
  Sex: Male
  Weight: 97.977 kg

DRUGS (1)
  1. RITUXIMAB GENENTECH [Suspect]
     Indication: WEGENER'S GRANULOMATOSIS
     Dosage: 1000 MG Q2WEEKS X 2 IV DRIP
     Route: 041
     Dates: start: 20080828, end: 20080828

REACTIONS (1)
  - DEEP VEIN THROMBOSIS [None]
